FAERS Safety Report 9966282 (Version 2)
Quarter: 2014Q1

REPORT INFORMATION
  Report Type: Report from Study
  Country: US (occurrence: US)
  Receive Date: 20140305
  Receipt Date: 20140305
  Transmission Date: 20141002
  Serious: No
  Sender: FDA-Public Use
  Company Number: US-ABBVIE-13P-163-1112303-00

PATIENT
  Age: 56 Year
  Sex: Female

DRUGS (11)
  1. HUMIRA [Suspect]
     Indication: CROHN^S DISEASE
     Dosage: DAY ONE
     Dates: start: 20130617, end: 20130617
  2. HUMIRA [Suspect]
     Dates: start: 20130701, end: 20130701
  3. HUMIRA [Suspect]
  4. METOPROLOL [Concomitant]
     Indication: HYPERTENSION
     Route: 048
  5. LOSARTAN [Concomitant]
     Indication: HYPERTENSION
     Route: 048
  6. HYDROCHLOROTHIAZIDE [Concomitant]
     Indication: HYPERTENSION
     Route: 048
  7. AZATHIOPRINE [Concomitant]
     Indication: CROHN^S DISEASE
     Route: 048
  8. IRON [Concomitant]
     Indication: ANAEMIA
     Route: 048
  9. RESCUE INHALER [Concomitant]
     Indication: ASTHMA
  10. RESCUE INHALER [Concomitant]
     Indication: DYSPNOEA
  11. LEVOTHYROXINE [Concomitant]
     Indication: HYPOTHYROIDISM
     Route: 048
     Dates: start: 2008

REACTIONS (7)
  - Defaecation urgency [Not Recovered/Not Resolved]
  - Diarrhoea [Not Recovered/Not Resolved]
  - Nausea [Recovered/Resolved]
  - Muscle spasms [Recovered/Resolved]
  - Pyrexia [Recovered/Resolved]
  - Drug ineffective [Recovering/Resolving]
  - Vomiting [Recovered/Resolved]
